FAERS Safety Report 20018328 (Version 1)
Quarter: 2021Q4

REPORT INFORMATION
  Report Type: Other
  Country: US (occurrence: None)
  Receive Date: 20211101
  Receipt Date: 20211101
  Transmission Date: 20220303
  Serious: Yes (Hospitalization)
  Sender: FDA-Public Use
  Company Number: US-ROCHE-2942949

PATIENT
  Age: 72 Year
  Sex: Female
  Weight: 77.180 kg

DRUGS (3)
  1. ACTEMRA [Suspect]
     Active Substance: TOCILIZUMAB
     Indication: Rheumatoid arthritis
     Dosage: 162 MG/0.9 ML
     Route: 058
  2. FENOFIBRATE [Concomitant]
     Active Substance: FENOFIBRATE
     Indication: Blood cholesterol
  3. ELIQUIS [Concomitant]
     Active Substance: APIXABAN
     Indication: Anticoagulant therapy
     Dates: start: 2020

REACTIONS (4)
  - Pneumonia [Recovered/Resolved]
  - H1N1 influenza [Recovered/Resolved]
  - Pain [Not Recovered/Not Resolved]
  - Blood triglycerides decreased [Not Recovered/Not Resolved]

NARRATIVE: CASE EVENT DATE: 20211001
